FAERS Safety Report 16839211 (Version 2)
Quarter: 2019Q3

REPORT INFORMATION
  Report Type: Spontaneous
  Country: US (occurrence: US)
  Receive Date: 20190923
  Receipt Date: 20190930
  Transmission Date: 20191005
  Serious: No
  Sender: FDA-Public Use
  Company Number: US-PFIZER INC-2019402655

PATIENT

DRUGS (1)
  1. CLINDAMYCIN. [Suspect]
     Active Substance: CLINDAMYCIN
     Indication: TOOTH INFECTION
     Dosage: UNK

REACTIONS (4)
  - Dyspepsia [Unknown]
  - Eructation [Unknown]
  - Odynophagia [Unknown]
  - Burn oesophageal [Unknown]
